FAERS Safety Report 10593552 (Version 9)
Quarter: 2015Q4

REPORT INFORMATION
  Report Type: Report from Study
  Country: US (occurrence: US)
  Receive Date: 20141119
  Receipt Date: 20151026
  Transmission Date: 20160304
  Serious: Yes (Hospitalization, Other)
  Sender: FDA-Public Use
  Company Number: US-ALEXION PHARMACEUTICALS INC.-A201404325

PATIENT
  Sex: Male

DRUGS (3)
  1. SOLIRIS [Suspect]
     Active Substance: ECULIZUMAB
     Dosage: UNK
     Route: 042
  2. SOLIRIS [Suspect]
     Active Substance: ECULIZUMAB
     Indication: PAROXYSMAL NOCTURNAL HAEMOGLOBINURIA
     Dosage: UNK
     Route: 042
  3. REVLIMID [Suspect]
     Active Substance: LENALIDOMIDE
     Indication: PRODUCT USED FOR UNKNOWN INDICATION
     Dosage: UNK
     Route: 065

REACTIONS (13)
  - Blood creatinine abnormal [Recovered/Resolved]
  - Incision site haematoma [Unknown]
  - Blood lactate dehydrogenase increased [Unknown]
  - Hip surgery [Unknown]
  - Malaise [Unknown]
  - Unevaluable event [Recovered/Resolved]
  - Infection [Unknown]
  - Haemoglobin abnormal [Recovered/Resolved]
  - Haematocrit abnormal [Recovered/Resolved]
  - Haptoglobin decreased [Unknown]
  - Infection [Not Recovered/Not Resolved]
  - Haemolysis [Not Recovered/Not Resolved]
  - Hip arthroplasty [Unknown]

NARRATIVE: CASE EVENT DATE: 201410
